FAERS Safety Report 5197091-X (Version None)
Quarter: 2007Q1

REPORT INFORMATION
  Report Type: 
  Country: None (occurrence: None)
  Receive Date: 20070103
  Receipt Date: 20061222
  Transmission Date: 20070707
  Serious: Yes (Death, Life-Threatening)
  Sender: FDA-Public Use
  Company Number: GB-ELI_LILLY_AND_COMPANY-GB200612004046

PATIENT
  Age: 66 Year
  Sex: Female

DRUGS (16)
  1. XIGRIS [Suspect]
     Indication: SEPSIS
     Dosage: 9.7 ML, EVERY HOUR
     Route: 042
     Dates: start: 20061125, end: 20061129
  2. ALFENTANIL [Concomitant]
     Route: 042
  3. ATRACURIUM BESYLATE [Concomitant]
  4. CEFTRIAXONE [Concomitant]
     Dosage: 1.5 G, 3/D
     Route: 042
  5. DOPEXAMINE [Concomitant]
     Dosage: 3 ML, EVERY HOUR
     Route: 042
  6. ENOXAPARIN SODIUM [Concomitant]
     Dosage: 40 MG, DAILY (1/D)
     Route: 058
  7. FLOLAN [Concomitant]
     Dosage: 13.5 ML, EVERY HOUR
     Route: 042
  8. HYDROCORTISONE [Concomitant]
     Dosage: 50 MG, 4/D
     Route: 042
  9. METRONIDAZOLE [Concomitant]
     Dosage: 500 MG, 3/D
     Route: 042
  10. NORADRENALINE [Concomitant]
  11. PANTOPRAZOLE SODIUM [Concomitant]
     Dosage: 8 MG, EVERY HOUR
     Route: 042
  12. ACETAMINOPHEN [Concomitant]
     Dosage: 1 G, 3/D
     Route: 042
  13. PROPOFOL [Concomitant]
     Route: 042
  14. PIPERACILLIN AND TAZOBACTAM [Concomitant]
     Dosage: 4.5 G, 3/D
     Route: 042
  15. VASOPRESSIN AND ANALOGUES [Concomitant]
     Route: 042
  16. METOCLOPRAMIDE [Concomitant]
     Dosage: 10 MG, UNK
     Route: 042

REACTIONS (3)
  - GASTROINTESTINAL HAEMORRHAGE [None]
  - MULTI-ORGAN FAILURE [None]
  - SEPTIC SHOCK [None]
